FAERS Safety Report 7728476-2 (Version None)
Quarter: 2011Q3

REPORT INFORMATION
  Report Type: 
  Country: None (occurrence: None)
  Receive Date: 20110905
  Receipt Date: 20110825
  Transmission Date: 20111222
  Serious: Yes (Other)
  Sender: FDA-Public Use
  Company Number: PHHY2011US07864

PATIENT
  Sex: Male
  Weight: 79.365 kg

DRUGS (19)
  1. MULTI-VITAMIN [Concomitant]
  2. DETROL [Concomitant]
     Dosage: 2 MG, UNK
  3. LEVOTHYROXINE SODIUM [Concomitant]
     Dosage: 100 UG, UNK
  4. PROVIGIL [Concomitant]
     Dosage: 100 MG, UNK
  5. GILENYA [Suspect]
     Indication: MULTIPLE SCLEROSIS
     Dosage: 0.5 MG, QD
     Route: 048
     Dates: start: 20110126
  6. FENTANYL-100 [Concomitant]
     Dosage: 12 UG, UNK
  7. CYCLOBENZAPRINE [Concomitant]
  8. LORATADINE [Concomitant]
     Dosage: 10 MG, UNK
  9. BACLOFEN [Concomitant]
     Dosage: 10 MG, UNK
  10. DOCUSATE SODIUM [Concomitant]
     Dosage: 100 MG, UNK
  11. TRAZODONE HCL [Concomitant]
  12. FAMPRIDINE [Concomitant]
     Dosage: 10 MG, UNK
  13. OXYCODONE HCL [Concomitant]
     Dosage: 10 MG, UNK
  14. VALIUM [Concomitant]
     Dosage: 2 MG, UNK
  15. ASCORBIC ACID [Concomitant]
  16. VITAMIN B-12 [Concomitant]
     Dosage: 100 UG, UNK
  17. CITALOPRAM [Concomitant]
     Dosage: 10 MG, UNK
  18. LORAZEPAM [Concomitant]
     Dosage: 0.5 MG, UNK
  19. ACYCLOVIR [Concomitant]
     Dosage: 200 MG, UNK

REACTIONS (12)
  - OROPHARYNGEAL PAIN [None]
  - DIARRHOEA [None]
  - CHILLS [None]
  - FEELING OF BODY TEMPERATURE CHANGE [None]
  - INFLUENZA LIKE ILLNESS [None]
  - PYREXIA [None]
  - DYSPNOEA [None]
  - VIRAL INFECTION [None]
  - PAIN [None]
  - HALLUCINATION [None]
  - VOMITING [None]
  - DISTURBANCE IN ATTENTION [None]
